FAERS Safety Report 20028269 (Version 2)
Quarter: 2022Q2

REPORT INFORMATION
  Report Type: Report from Study
  Country: US (occurrence: US)
  Receive Date: 20211103
  Receipt Date: 20220617
  Transmission Date: 20220721
  Serious: Yes (Hospitalization)
  Sender: FDA-Public Use
  Company Number: US-ALNYLAM PHARMACEUTICALS, INC.-ALN-2021-002513

PATIENT

DRUGS (1)
  1. GIVLAARI [Suspect]
     Active Substance: GIVOSIRAN SODIUM
     Indication: Porphyria acute
     Dosage: 2.5 MILLIGRAM/KILOGRAM, MONTHLY
     Route: 058
     Dates: start: 20210505

REACTIONS (7)
  - Hospitalisation [Unknown]
  - Vomiting [Unknown]
  - Headache [Unknown]
  - Diarrhoea [Unknown]
  - Nausea [Unknown]
  - Porphyria acute [Unknown]
  - Incorrect dose administered [Unknown]

NARRATIVE: CASE EVENT DATE: 20211006
